FAERS Safety Report 25239644 (Version 1)
Quarter: 2025Q2

REPORT INFORMATION
  Report Type: Spontaneous
  Country: US (occurrence: US)
  Receive Date: 20250425
  Receipt Date: 20250425
  Transmission Date: 20250717
  Serious: Yes (Death)
  Sender: MYLAN
  Company Number: US-MYLANLABS-2025M1035408

PATIENT
  Age: 62 Year
  Sex: Male

DRUGS (8)
  1. VANCOMYCIN [Suspect]
     Active Substance: VANCOMYCIN
     Indication: Gastroenteritis clostridial
  2. VANCOMYCIN [Suspect]
     Active Substance: VANCOMYCIN
     Indication: Peritonitis bacterial
  3. METRONIDAZOLE [Suspect]
     Active Substance: METRONIDAZOLE
     Indication: Gastroenteritis clostridial
  4. METRONIDAZOLE [Suspect]
     Active Substance: METRONIDAZOLE
     Indication: Peritonitis bacterial
  5. MEROPENEM [Concomitant]
     Active Substance: MEROPENEM
     Indication: Clostridium difficile infection
  6. MEROPENEM [Concomitant]
     Active Substance: MEROPENEM
     Indication: Clostridial infection
  7. ERAVACYCLINE [Concomitant]
     Active Substance: ERAVACYCLINE
     Indication: Clostridium difficile infection
  8. ERAVACYCLINE [Concomitant]
     Active Substance: ERAVACYCLINE
     Indication: Clostridial infection

REACTIONS (1)
  - Drug ineffective [Fatal]
